FAERS Safety Report 6212212-5 (Version None)
Quarter: 2009Q2

REPORT INFORMATION
  Report Type: 
  Country: None (occurrence: None)
  Receive Date: 20090602
  Receipt Date: 20090527
  Transmission Date: 20091009
  Serious: Yes (Other)
  Sender: FDA-Public Use
  Company Number: PHEH2009US01509

PATIENT
  Age: 61 Year
  Sex: Female

DRUGS (6)
  1. RECLAST [Suspect]
     Indication: OSTEOPOROSIS
     Dosage: UNK, YEARLY
     Dates: start: 20071026
  2. RECLAST [Suspect]
     Dosage: UNK, YEARLY
     Route: 042
     Dates: start: 20090123, end: 20090123
  3. ZOCOR [Concomitant]
     Dosage: ONE DAILY
  4. ASPIRIN [Concomitant]
  5. VITAMINS [Concomitant]
  6. EVISTA [Concomitant]
     Dosage: 60 MG, QD
     Route: 048

REACTIONS (8)
  - CARDIAC STRESS TEST ABNORMAL [None]
  - CHEST PAIN [None]
  - DIZZINESS [None]
  - DYSPNOEA [None]
  - ELECTROCARDIOGRAM ABNORMAL [None]
  - FATIGUE [None]
  - HEAD DISCOMFORT [None]
  - MYALGIA [None]
